FAERS Safety Report 4679446-2 (Version None)
Quarter: 2005Q2

REPORT INFORMATION
  Report Type: 
  Country: None (occurrence: None)
  Receive Date: 20050602
  Receipt Date: 20050525
  Transmission Date: 20051028
  Serious: Yes (Other)
  Sender: FDA-Public Use
  Company Number: CA-MERCK-0505CAN00196

PATIENT
  Age: 17 Year
  Sex: Female
  Weight: 55 kg

DRUGS (2)
  1. SINGULAIR [Suspect]
     Route: 048
  2. SINGULAIR [Suspect]
     Route: 048
     Dates: start: 20050501, end: 20050501

REACTIONS (3)
  - INTENTIONAL MISUSE [None]
  - NO ADVERSE EFFECT [None]
  - SUICIDE ATTEMPT [None]
